FAERS Safety Report 5731837-4 (Version None)
Quarter: 2008Q2

REPORT INFORMATION
  Report Type: 
  Country: None (occurrence: None)
  Receive Date: 20080508
  Receipt Date: 20080506
  Transmission Date: 20081010
  Serious: Yes (Other)
  Sender: FDA-Public Use
  Company Number: B0507118A

PATIENT
  Sex: Female

DRUGS (1)
  1. FORTUM [Suspect]
     Indication: URETEROLITHOTOMY
     Dosage: 3INJ CUMULATIVE DOSE
     Route: 042
     Dates: start: 20080131

REACTIONS (3)
  - HYPOTENSION [None]
  - LOSS OF CONSCIOUSNESS [None]
  - PHARMACEUTICAL PRODUCT COMPLAINT [None]
